FAERS Safety Report 17154637 (Version 1)
Quarter: 2019Q4

REPORT INFORMATION
  Report Type: Spontaneous
  Country: US (occurrence: US)
  Receive Date: 20191214
  Receipt Date: 20191214
  Transmission Date: 20200122
  Serious: Yes (Other)
  Sender: FDA-Public Use
  Company Number: US-ROCHE-2493026

PATIENT
  Sex: Female

DRUGS (1)
  1. ACTEMRA [Suspect]
     Active Substance: TOCILIZUMAB
     Indication: TEMPORAL ARTERITIS
     Dosage: 162 MG; ONGOING: YES
     Route: 058
     Dates: start: 20190221

REACTIONS (3)
  - Blindness [Unknown]
  - Headache [Unknown]
  - Inappropriate schedule of product administration [Unknown]
